FAERS Safety Report 8088376-8 (Version None)
Quarter: 2012Q1

REPORT INFORMATION
  Report Type: 
  Country: None (occurrence: None)
  Receive Date: 20120128
  Receipt Date: 20110531
  Transmission Date: 20120608
  Serious: No
  Sender: FDA-Public Use
  Company Number: US-ABBOTT-11P-163-0729533-00

PATIENT
  Age: 45 Year
  Sex: Female

DRUGS (2)
  1. VITAMIN B-12 [Concomitant]
     Indication: PRODUCT USED FOR UNKNOWN INDICATION
     Route: 050
     Dates: end: 20110401
  2. HUMIRA [Suspect]
     Indication: CROHN'S DISEASE
     Dates: start: 20061201

REACTIONS (7)
  - TONGUE ULCERATION [None]
  - ORAL DISORDER [None]
  - GINGIVAL DISORDER [None]
  - GINGIVAL ERYTHEMA [None]
  - PHARYNGITIS STREPTOCOCCAL [None]
  - PYREXIA [None]
  - INJECTION SITE HAEMATOMA [None]
